FAERS Safety Report 14387521 (Version 3)
Quarter: 2018Q4

REPORT INFORMATION
  Report Type: Spontaneous
  Country: US (occurrence: US)
  Receive Date: 20180115
  Receipt Date: 20181227
  Transmission Date: 20190204
  Serious: Yes (Other)
  Sender: FDA-Public Use
  Company Number: US-SA-2017SA191412

PATIENT
  Age: 66 Year
  Sex: Female
  Weight: 86 kg

DRUGS (13)
  1. NEOSAR [Concomitant]
     Active Substance: CYCLOPHOSPHAMIDE
     Route: 065
  2. DOXORUBICIN [Concomitant]
     Active Substance: DOXORUBICIN
     Route: 065
  3. ARMOUR THYROID [Concomitant]
     Active Substance: THYROID, PORCINE
     Route: 065
  4. ACETYLSALICYLIC ACID [Concomitant]
     Active Substance: ASPIRIN
     Dosage: UNK UNK,UNK
     Route: 065
     Dates: start: 20140620
  5. VENTOLIN [Concomitant]
     Active Substance: ALBUTEROL SULFATE
     Dosage: UNK UNK,UNK
     Route: 065
     Dates: start: 199001, end: 20070906
  6. ARIMIDEX [Concomitant]
     Active Substance: ANASTROZOLE
     Indication: BREAST CANCER FEMALE
     Dosage: UNK UNK, UNK
     Route: 065
     Dates: start: 20141205
  7. TAXOTERE [Suspect]
     Active Substance: DOCETAXEL
     Dosage: 146 MG,Q3W
     Route: 042
     Dates: start: 20130331, end: 20130331
  8. FOSAMAX [Concomitant]
     Active Substance: ALENDRONATE SODIUM
     Route: 065
  9. RESTASIS [Concomitant]
     Active Substance: CYCLOSPORINE
     Dosage: UNK UNK,UNK
     Route: 065
     Dates: start: 201201
  10. CYTOXAN [Concomitant]
     Active Substance: CYCLOPHOSPHAMIDE
     Route: 065
  11. NEULASTA [Concomitant]
     Active Substance: PEGFILGRASTIM
     Dosage: UNK UNK, UNK
     Route: 065
  12. ADRIAMYCIN [Concomitant]
     Active Substance: DOXORUBICIN HYDROCHLORIDE
     Route: 065
  13. TAXOTERE [Suspect]
     Active Substance: DOCETAXEL
     Indication: BREAST CANCER FEMALE
     Dosage: 146 MG,Q3W
     Route: 042
     Dates: start: 20130115, end: 20130115

REACTIONS (2)
  - Emotional distress [Unknown]
  - Alopecia [Not Recovered/Not Resolved]

NARRATIVE: CASE EVENT DATE: 20150211
